FAERS Safety Report 22270868 (Version 1)
Quarter: 2023Q2

REPORT INFORMATION
  Report Type: Spontaneous
  Country: US (occurrence: US)
  Receive Date: 20230501
  Receipt Date: 20230501
  Transmission Date: 20230721
  Serious: No
  Sender: FDA-Public Use
  Company Number: US-PERRIGO-23US004154

PATIENT
  Age: 50 Year
  Sex: Female
  Weight: 58.957 kg

DRUGS (1)
  1. MICONAZOLE 3 COMBINATION PACK [Suspect]
     Active Substance: MICONAZOLE NITRATE
     Indication: Vulvovaginal pruritus
     Dosage: 200 MG, SINGLE
     Route: 067
     Dates: start: 20230329, end: 20230329

REACTIONS (3)
  - Gait disturbance [Recovered/Resolved]
  - Condition aggravated [Recovering/Resolving]
  - Vulvovaginal discomfort [Recovered/Resolved]

NARRATIVE: CASE EVENT DATE: 20230329
